FAERS Safety Report 17677504 (Version 1)
Quarter: 2020Q2

REPORT INFORMATION
  Report Type: Spontaneous
  Country: DE (occurrence: DE)
  Receive Date: 20200416
  Receipt Date: 20200416
  Transmission Date: 20200714
  Serious: Yes (Other)
  Sender: FDA-Public Use
  Company Number: DE-BAUSCH-BL-2020-010855

PATIENT
  Age: 42 Year
  Sex: Male

DRUGS (4)
  1. DEXAMETHASONE. [Suspect]
     Active Substance: DEXAMETHASONE
     Indication: POSTOPERATIVE CARE
     Route: 061
  2. RIMEXOLONE [Suspect]
     Active Substance: RIMEXOLONE
     Indication: DIFFUSE LAMELLAR KERATITIS
     Route: 061
  3. ARTIFICIAL TEARS [Concomitant]
     Active Substance: GLYCERIN\HYPROMELLOSES\POLYETHYLENE GLYCOL 400
     Indication: POSTOPERATIVE CARE
  4. OFLOXACIN. [Concomitant]
     Active Substance: OFLOXACIN
     Indication: POSTOPERATIVE CARE
     Route: 061

REACTIONS (2)
  - Keratitis interstitial [Recovering/Resolving]
  - Intraocular pressure increased [Recovering/Resolving]
